FAERS Safety Report 7000091-8 (Version None)
Quarter: 2010Q3

REPORT INFORMATION
  Report Type: 
  Country: None (occurrence: None)
  Receive Date: 20100920
  Receipt Date: 20100915
  Transmission Date: 20110219
  Serious: Yes (Hospitalization)
  Sender: FDA-Public Use
  Company Number: DE-ELI_LILLY_AND_COMPANY-DE201006003355

PATIENT
  Age: 54 Year
  Sex: Male
  Weight: 94 kg

DRUGS (6)
  1. PRASUGREL HYDROCHLORIDE [Suspect]
     Indication: ACUTE CORONARY SYNDROME
     Dosage: UNK, DAILY (1/D)
     Route: 048
     Dates: start: 20100501
  2. ASPIRIN [Concomitant]
     Dosage: 100 MG, DAILY (1/D)
     Dates: start: 20100212
  3. RAMIPRIL [Concomitant]
     Indication: HYPERTENSION
     Dates: start: 20100501
  4. PRAVASTATIN [Concomitant]
     Indication: PROPHYLAXIS
     Dosage: UNK, UNK
     Dates: start: 20100501, end: 20100601
  5. PANTOPRAZOLE SODIUM [Concomitant]
     Indication: GASTROOESOPHAGEAL REFLUX DISEASE
     Dates: start: 20100501
  6. SIMVAHEXAL [Concomitant]
     Indication: HYPERLIPIDAEMIA
     Dates: start: 20100610

REACTIONS (1)
  - HYPERTENSIVE CRISIS [None]
